FAERS Safety Report 12648307 (Version 1)
Quarter: 2016Q3

REPORT INFORMATION
  Report Type: Spontaneous
  Country: FR (occurrence: FR)
  Receive Date: 20160812
  Receipt Date: 20160812
  Transmission Date: 20161109
  Serious: Yes (Disabling)
  Sender: FDA-Public Use
  Company Number: FR-LEO PHARMA-241905

PATIENT
  Age: 86 Year
  Sex: Female

DRUGS (4)
  1. TELMISARTAN. [Concomitant]
     Active Substance: TELMISARTAN
     Indication: HYPERTENSION
  2. ALENDRONIC ACID [Concomitant]
     Active Substance: ALENDRONIC ACID
     Indication: LOCAL REACTION
  3. OMEPRAZOLE. [Concomitant]
     Active Substance: OMEPRAZOLE
     Indication: GASTROOESOPHAGEAL REFLUX DISEASE
  4. PICATO [Suspect]
     Active Substance: INGENOL MEBUTATE
     Indication: ACTINIC KERATOSIS
     Route: 061
     Dates: start: 20160306, end: 20160307

REACTIONS (5)
  - Application site exfoliation [Recovered/Resolved with Sequelae]
  - Arthralgia [Recovered/Resolved with Sequelae]
  - Application site vesicles [Recovered/Resolved with Sequelae]
  - Joint instability [Recovered/Resolved with Sequelae]
  - Incorrect drug administration duration [Unknown]

NARRATIVE: CASE EVENT DATE: 20160307
